FAERS Safety Report 6741942-1 (Version None)
Quarter: 2010Q2

REPORT INFORMATION
  Report Type: 
  Country: None (occurrence: None)
  Receive Date: 20100526
  Receipt Date: 20100520
  Transmission Date: 20101027
  Serious: Yes (Hospitalization)
  Sender: FDA-Public Use
  Company Number: B0656886A

PATIENT
  Sex: Male

DRUGS (4)
  1. AVOLVE [Suspect]
     Indication: BENIGN PROSTATIC HYPERPLASIA
     Dosage: .5MG PER DAY
     Route: 048
     Dates: start: 20100107, end: 20100510
  2. SILODOSIN [Concomitant]
     Indication: BENIGN PROSTATIC HYPERPLASIA
     Dosage: 8MG PER DAY
     Route: 048
  3. BESACOLIN [Concomitant]
     Indication: BENIGN PROSTATIC HYPERPLASIA
     Dosage: 49.8MG PER DAY
     Route: 048
  4. EVIPROSTAT [Concomitant]
     Indication: BENIGN PROSTATIC HYPERPLASIA
     Dosage: 3IUAX PER DAY
     Route: 048
     Dates: start: 20100107

REACTIONS (1)
  - HEPATIC FUNCTION ABNORMAL [None]
